FAERS Safety Report 5885784-8 (Version None)
Quarter: 2008Q3

REPORT INFORMATION
  Report Type: 
  Country: None (occurrence: None)
  Receive Date: 20080917
  Receipt Date: 20080904
  Transmission Date: 20090109
  Serious: Yes (Other)
  Sender: FDA-Public Use
  Company Number: GB-RANBAXY-2008RR-17866

PATIENT

DRUGS (5)
  1. AMOXICILLINE RPG 1G/5ML POUDRE ET SOLUTION POUR PREPARATION INJECTABLE [Suspect]
     Dosage: 1 G, UNK
     Route: 042
     Dates: start: 20080818
  2. GLICLAZIDE [Concomitant]
     Route: 048
  3. METFORMIN [Concomitant]
     Route: 048
  4. PREDNISOLONE [Concomitant]
     Dosage: 5 MG, BID
     Route: 048
  5. SIMVASTATIN [Concomitant]
     Route: 048

REACTIONS (3)
  - FLUSHING [None]
  - HYPOTENSION [None]
  - SINUS TACHYCARDIA [None]
